FAERS Safety Report 5405812-3 (Version None)
Quarter: 2007Q3

REPORT INFORMATION
  Report Type: 
  Country: None (occurrence: None)
  Receive Date: 20070802
  Receipt Date: 20070723
  Transmission Date: 20080115
  Serious: Yes (Hospitalization)
  Sender: FDA-Public Use
  Company Number: GXBR2007US01373

PATIENT
  Age: 74 Year
  Sex: Female
  Weight: 81.6 kg

DRUGS (6)
  1. ATENOLOL [Suspect]
     Indication: HYPERTENSION
     Dosage: 25 MG, QD, ORAL; 25 MG,BID,ORAL
     Route: 048
     Dates: start: 20050401, end: 20070703
  2. ATENOLOL [Suspect]
     Indication: HYPERTENSION
     Dosage: 25 MG, QD, ORAL; 25 MG,BID,ORAL
     Route: 048
     Dates: start: 20070704
  3. NEXIUM [Suspect]
  4. PRINIVIL [Concomitant]
  5. HYDROCHLOROTHIAZIDE [Concomitant]
  6. TIGAN [Concomitant]

REACTIONS (6)
  - BLOOD PRESSURE INCREASED [None]
  - DIARRHOEA [None]
  - DIZZINESS [None]
  - HIATUS HERNIA [None]
  - HYPOTENSION [None]
  - VOMITING [None]
